FAERS Safety Report 11838732 (Version 1)
Quarter: 2015Q4

REPORT INFORMATION
  Report Type: Spontaneous
  Country: US (occurrence: US)
  Receive Date: 20151215
  Receipt Date: 20151215
  Transmission Date: 20160305
  Serious: No
  Sender: FDA-Public Use
  Company Number: US-SA-2015SA089116

PATIENT
  Age: 93 Year
  Sex: Female

DRUGS (1)
  1. FERRLECIT [Suspect]
     Active Substance: SODIUM FERRIC GLUCONATE COMPLEX
     Indication: ANAEMIA
     Dosage: ONCE OVER ?TWO HOURS DOSE:250 MILLIGRAM(S)/MILLILITRE
     Route: 065
     Dates: start: 20150616, end: 20150616

REACTIONS (6)
  - Unevaluable event [Unknown]
  - Dyspnoea [Unknown]
  - Bradycardia [Unknown]
  - Lethargy [Unknown]
  - Hypotension [Unknown]
  - Blood glucose increased [Unknown]
